APPROVED DRUG PRODUCT: MYKROX
Active Ingredient: METOLAZONE
Strength: 0.5MG
Dosage Form/Route: TABLET;ORAL
Application: N019532 | Product #001
Applicant: CHARTWELL MOLECULAR HOLDINGS LLC
Approved: Oct 30, 1987 | RLD: No | RS: No | Type: DISCN